FAERS Safety Report 7970502-X (Version None)
Quarter: 2011Q4

REPORT INFORMATION
  Report Type: 
  Country: None (occurrence: None)
  Receive Date: 20111212
  Receipt Date: 20110624
  Transmission Date: 20120403
  Serious: No
  Sender: FDA-Public Use
  Company Number: US-ABBOTT-11P-163-0734860-00

PATIENT
  Sex: Female
  Weight: 82.628 kg

DRUGS (1)
  1. VICODIN [Suspect]
     Indication: UPPER LIMB FRACTURE
     Dosage: AT BEDTIME
     Route: 048

REACTIONS (2)
  - DRUG INEFFECTIVE [None]
  - PRODUCT QUALITY ISSUE [None]
